FAERS Safety Report 17761784 (Version 13)
Quarter: 2022Q4

REPORT INFORMATION
  Report Type: Report from Study
  Country: CA (occurrence: CA)
  Receive Date: 20200508
  Receipt Date: 20221117
  Transmission Date: 20230112
  Serious: Yes (Other)
  Sender: FDA-Public Use
  Company Number: PHHY2016CA123269

PATIENT
  Age: 50 Year
  Sex: Male

DRUGS (7)
  1. COSENTYX [Suspect]
     Active Substance: SECUKINUMAB
     Indication: Psoriasis
     Dosage: 300 MG, Q2W
     Route: 058
     Dates: start: 20160819
  2. COSENTYX [Suspect]
     Active Substance: SECUKINUMAB
     Dosage: 300 MG, QW
     Route: 058
     Dates: start: 20160902
  3. COSENTYX [Suspect]
     Active Substance: SECUKINUMAB
     Dosage: 300 MG, QW
     Route: 058
     Dates: start: 20160914
  4. COSENTYX [Suspect]
     Active Substance: SECUKINUMAB
     Dosage: 300 MG, QMO
     Route: 058
  5. COSENTYX [Suspect]
     Active Substance: SECUKINUMAB
     Dosage: 300 MG, Q2W
     Route: 058
     Dates: start: 201906
  6. COSENTYX [Suspect]
     Active Substance: SECUKINUMAB
     Dosage: 300 MG, Q2W
     Route: 058
     Dates: start: 20220718
  7. ZANTAC [Concomitant]
     Active Substance: RANITIDINE HYDROCHLORIDE
     Indication: Product used for unknown indication
     Dosage: UNK
     Route: 065

REACTIONS (28)
  - Upper limb fracture [Recovering/Resolving]
  - Accident at work [Unknown]
  - Faeces discoloured [Unknown]
  - Ear infection [Unknown]
  - Lacrimation increased [Unknown]
  - Stress [Unknown]
  - Injury [Unknown]
  - Headache [Recovering/Resolving]
  - Pain [Unknown]
  - Pyrexia [Recovering/Resolving]
  - Cough [Recovering/Resolving]
  - Retching [Recovering/Resolving]
  - Illness [Unknown]
  - Injection site haemorrhage [Unknown]
  - Injection site pain [Unknown]
  - Tooth infection [Unknown]
  - Feeling abnormal [Recovering/Resolving]
  - Influenza [Unknown]
  - COVID-19 [Unknown]
  - Fatigue [Unknown]
  - Dizziness [Unknown]
  - Condition aggravated [Unknown]
  - Nasopharyngitis [Recovering/Resolving]
  - Sinusitis [Not Recovered/Not Resolved]
  - Sputum discoloured [Unknown]
  - Rhinorrhoea [Unknown]
  - Psoriasis [Unknown]
  - Product dose omission issue [Unknown]

NARRATIVE: CASE EVENT DATE: 20160801
